FAERS Safety Report 5714416-4 (Version None)
Quarter: 2008Q2

REPORT INFORMATION
  Report Type: 
  Country: None (occurrence: None)
  Receive Date: 20080423
  Receipt Date: 20030414
  Transmission Date: 20081010
  Serious: Yes (Death, Hospitalization)
  Sender: FDA-Public Use
  Company Number: US-ROCHE-313412

PATIENT
  Sex: Male
  Weight: 94.3 kg

DRUGS (7)
  1. PEGASYS [Suspect]
     Route: 058
     Dates: start: 20020429, end: 20020501
  2. RIBAVIRIN [Suspect]
     Route: 048
     Dates: start: 20020429, end: 20020501
  3. RABEPRAZOLE SODIUM [Concomitant]
     Dates: start: 20020425
  4. AMITRIPTYLINE HCL [Concomitant]
     Dates: start: 20011108
  5. ASPIRIN [Concomitant]
     Dates: start: 20011108
  6. CLOPIDOGREL [Concomitant]
     Dates: start: 20011108
  7. METFORMIN HCL [Concomitant]
     Dates: start: 20011108

REACTIONS (3)
  - DEATH [None]
  - DIZZINESS [None]
  - DYSPNOEA [None]
